FAERS Safety Report 6671544-7 (Version None)
Quarter: 2010Q2

REPORT INFORMATION
  Report Type: 
  Country: None (occurrence: None)
  Receive Date: 20100407
  Receipt Date: 20100329
  Transmission Date: 20101027
  Serious: Yes (Other)
  Sender: FDA-Public Use
  Company Number: IN-BRISTOL-MYERS SQUIBB COMPANY-15040173

PATIENT
  Age: 35 Year
  Sex: Female

DRUGS (7)
  1. CISPLATIN [Suspect]
     Indication: NASOPHARYNGEAL CANCER
  2. PACLITAXEL [Concomitant]
  3. CARBOPLATIN [Concomitant]
  4. RADIOTHERAPY [Concomitant]
  5. ONDANSETRON [Concomitant]
     Indication: ANTIEMETIC SUPPORTIVE CARE
     Dosage: DAY 1 OF EACH CYCLE
  6. METOCLOPRAMIDE HYDROCHLORIDE [Concomitant]
     Indication: ANTIEMETIC SUPPORTIVE CARE
  7. DEXAMETHASONE [Concomitant]
     Indication: ANTIEMETIC SUPPORTIVE CARE

REACTIONS (6)
  - ALKALOSIS HYPOKALAEMIC [None]
  - DEHYDRATION [None]
  - HYPOCALCAEMIA [None]
  - IMPAIRED GASTRIC EMPTYING [None]
  - NAUSEA [None]
  - VOMITING [None]
